FAERS Safety Report 8116790-0 (Version None)
Quarter: 2012Q1

REPORT INFORMATION
  Report Type: 
  Country: None (occurrence: None)
  Receive Date: 20120206
  Receipt Date: 20120131
  Transmission Date: 20120608
  Serious: Yes (Death, Life-Threatening, Hospitalization, Other)
  Sender: FDA-Public Use
  Company Number: PHEH2011US04990

PATIENT
  Sex: Female
  Weight: 80 kg

DRUGS (5)
  1. BACTRIM [Concomitant]
     Indication: PROPHYLAXIS
     Dosage: 250 MG, BID
     Route: 048
  2. EXJADE [Suspect]
     Dosage: 500 MG, BID
     Route: 048
     Dates: end: 20111202
  3. EXJADE [Suspect]
     Indication: THROMBOCYTOPENIA
     Dosage: 500 MG, BID
     Route: 048
     Dates: start: 20100622
  4. RNOXDOL [Concomitant]
     Indication: PAIN
     Dosage: 5MG - 10 MG
  5. EXJADE [Suspect]
     Indication: IRON OVERLOAD
     Dosage: 1000 MG DAILY
     Route: 048
     Dates: start: 20100715

REACTIONS (9)
  - NAUSEA [None]
  - VOMITING [None]
  - ANAEMIA [None]
  - NEOPLASM PROGRESSION [None]
  - LEUKAEMIA [None]
  - DIARRHOEA [None]
  - NEOPLASM MALIGNANT [None]
  - MALAISE [None]
  - LUNG INFECTION [None]
